FAERS Safety Report 8120042-2 (Version None)
Quarter: 2012Q1

REPORT INFORMATION
  Report Type: 
  Country: None (occurrence: None)
  Receive Date: 20120207
  Receipt Date: 20120201
  Transmission Date: 20120608
  Serious: Yes (Hospitalization)
  Sender: FDA-Public Use
  Company Number: JP-B.I. PHARMACEUTICALS,INC./RIDGEFIELD-2012-BP-01997NB

PATIENT
  Sex: Male

DRUGS (4)
  1. ADVAIR DISKUS 100/50 [Concomitant]
     Indication: EMPHYSEMA
  2. MUCODYNE [Concomitant]
     Indication: EMPHYSEMA
  3. SPIRIVA [Suspect]
     Indication: EMPHYSEMA
     Dosage: 5 MCG
     Route: 055
     Dates: start: 20101208, end: 20110809
  4. MUCOSIL-10 [Concomitant]
     Indication: EMPHYSEMA

REACTIONS (1)
  - EMPHYSEMA [None]
